FAERS Safety Report 16899619 (Version 1)
Quarter: 2019Q4

REPORT INFORMATION
  Report Type: Spontaneous
  Country: CA (occurrence: CA)
  Receive Date: 20191009
  Receipt Date: 20191009
  Transmission Date: 20200122
  Serious: Yes (Hospitalization)
  Sender: FDA-Public Use
  Company Number: CA-TEVA-2019-CA-1116785

PATIENT
  Age: 52 Year
  Sex: Female

DRUGS (13)
  1. MAGNESIUM CITRATE. [Concomitant]
     Active Substance: MAGNESIUM CITRATE
     Route: 065
  2. NEULASTA [Concomitant]
     Active Substance: PEGFILGRASTIM
     Route: 058
  3. FLUOROURACIL. [Suspect]
     Active Substance: FLUOROURACIL
     Indication: HER-2 POSITIVE BREAST CANCER
     Route: 042
  4. EPIRUBICIN HYDROCHLORIDE. [Suspect]
     Active Substance: EPIRUBICIN HYDROCHLORIDE
     Indication: HER-2 POSITIVE BREAST CANCER
     Route: 042
  5. ENALAPRIL [Concomitant]
     Active Substance: ENALAPRIL
     Route: 065
  6. ONDANSETRON [Concomitant]
     Active Substance: ONDANSETRON
     Indication: NAUSEA
     Route: 065
  7. ROSUVASTATIN. [Concomitant]
     Active Substance: ROSUVASTATIN
     Route: 065
  8. DEXAMETHASONE. [Concomitant]
     Active Substance: DEXAMETHASONE
     Dosage: 4 MILLIGRAM DAILY;
  9. PROCYTOX [Suspect]
     Active Substance: CYCLOPHOSPHAMIDE
     Indication: HER-2 POSITIVE BREAST CANCER
     Route: 042
  10. APREPITANT. [Concomitant]
     Active Substance: APREPITANT
     Indication: NAUSEA
     Dosage: 125 MILLIGRAM DAILY;
     Route: 065
  11. STEMETIL [PROCHLORPERAZINE] [Concomitant]
     Active Substance: PROCHLORPERAZINE
     Indication: NAUSEA
     Route: 065
  12. VITAMIN B COMPLEX [Concomitant]
     Active Substance: CYANOCOBALAMIN\DEXPANTHENOL\NIACINAMIDE\PYRIDOXINE HYDROCHLORIDE\RIBOFLAVIN 5^-PHOSPHATE SODIUM\THIAMINE HYDROCHLORIDE\VITAMIN B COMPLEX
     Route: 065
  13. DEXAMETHASONE. [Concomitant]
     Active Substance: DEXAMETHASONE
     Indication: NAUSEA
     Dosage: 8 MILLIGRAM DAILY;
     Route: 065

REACTIONS (7)
  - Asthenia [Recovered/Resolved]
  - Oropharyngeal pain [Recovered/Resolved]
  - Pyrexia [Recovered/Resolved]
  - Rhinorrhoea [Recovered/Resolved]
  - Febrile neutropenia [Recovered/Resolved]
  - Cough [Recovered/Resolved]
  - Respiratory syncytial virus infection [Recovered/Resolved]
